FAERS Safety Report 5741782-6 (Version None)
Quarter: 2008Q2

REPORT INFORMATION
  Report Type: 
  Country: None (occurrence: None)
  Receive Date: 20080519
  Receipt Date: 20080516
  Transmission Date: 20081010
  Serious: Yes (Other)
  Sender: FDA-Public Use
  Company Number: BE-BAYER-200717625GPV

PATIENT
  Age: 41 Year
  Sex: Female
  Weight: 100 kg

DRUGS (4)
  1. BETAFERON [Suspect]
     Indication: MULTIPLE SCLEROSIS
     Route: 058
     Dates: start: 20071017, end: 20071129
  2. LIORESAL [Suspect]
     Indication: MUSCLE SPASTICITY
     Dosage: UNIT DOSE: 10 MG
     Route: 048
     Dates: start: 20071015, end: 20071112
  3. AROPAX [Concomitant]
     Indication: DEPRESSION
     Dosage: UNIT DOSE: 20 MG
     Route: 048
     Dates: start: 20000101
  4. CONTRACEPTIVE PILL [Concomitant]
     Indication: ORAL CONTRACEPTION

REACTIONS (3)
  - FATIGUE [None]
  - LIVER FUNCTION TEST ABNORMAL [None]
  - PRURITUS [None]
